FAERS Safety Report 20746474 (Version 9)
Quarter: 2023Q2

REPORT INFORMATION
  Report Type: Spontaneous
  Country: US (occurrence: US)
  Receive Date: 20220425
  Receipt Date: 20230413
  Transmission Date: 20230721
  Serious: Yes (Other)
  Sender: FDA-Public Use
  Company Number: US-PFIZER INC-202200248252

PATIENT
  Age: 61 Year
  Sex: Female

DRUGS (4)
  1. IBRANCE [Suspect]
     Active Substance: PALBOCICLIB
     Dosage: 100 MG
     Dates: start: 20220126
  2. IBRANCE [Suspect]
     Active Substance: PALBOCICLIB
     Dosage: 125 MG
     Dates: start: 20220130
  3. IBRANCE [Suspect]
     Active Substance: PALBOCICLIB
     Dosage: EVERY OTHER DAY
  4. IBRANCE [Suspect]
     Active Substance: PALBOCICLIB
     Dosage: 100 MG
     Dates: end: 20230405

REACTIONS (20)
  - Constipation [Unknown]
  - Off label use [Unknown]
  - Product dose omission issue [Unknown]
  - Increased appetite [Unknown]
  - Hot flush [Unknown]
  - Vulvovaginal mycotic infection [Unknown]
  - Fungal skin infection [Recovering/Resolving]
  - Immune system disorder [Unknown]
  - Pruritus [Unknown]
  - Scratch [Unknown]
  - Blister [Unknown]
  - Urticaria [Unknown]
  - Rash erythematous [Unknown]
  - Illness [Unknown]
  - Depression [Unknown]
  - Lethargy [Unknown]
  - Libido decreased [Unknown]
  - Feeling abnormal [Unknown]
  - Memory impairment [Unknown]
  - Arthralgia [Unknown]

NARRATIVE: CASE EVENT DATE: 20220101
